FAERS Safety Report 8030662-1 (Version None)
Quarter: 2012Q1

REPORT INFORMATION
  Report Type: 
  Country: None (occurrence: None)
  Receive Date: 20120109
  Receipt Date: 20120105
  Transmission Date: 20120608
  Serious: Yes (Hospitalization, Other)
  Sender: FDA-Public Use
  Company Number: GB-ROCHE-1028075

PATIENT
  Sex: Male

DRUGS (2)
  1. LEFLUNOMIDE [Concomitant]
  2. MABTHERA [Suspect]
     Indication: RHEUMATOID ARTHRITIS
     Dates: start: 20101111

REACTIONS (1)
  - METASTASES TO ADRENALS [None]
